FAERS Safety Report 12160923 (Version 1)
Quarter: 2016Q1

REPORT INFORMATION
  Report Type: Report from Study
  Country: ES (occurrence: ES)
  Receive Date: 20160308
  Receipt Date: 20160308
  Transmission Date: 20160526
  Serious: Yes (Other)
  Sender: FDA-Public Use
  Company Number: ES-JNJFOC-20160301617

PATIENT

DRUGS (3)
  1. RIBAVIRIN. [Suspect]
     Active Substance: RIBAVIRIN
     Indication: HEPATITIS C
     Dosage: BETWEEN 26-MAR-2015 TO 01-SEP-2015
     Route: 065
     Dates: start: 2015, end: 2015
  2. SIMEPREVIR [Suspect]
     Active Substance: SIMEPREVIR
     Indication: HEPATITIS C
     Dosage: BETWEEN 26-MAR-2015 TO 01-SEP-2015
     Route: 065
     Dates: start: 2015, end: 2015
  3. SOFOSBUVIR [Suspect]
     Active Substance: SOFOSBUVIR
     Indication: HEPATITIS C
     Dosage: BETWEEN 26-MAR-2015 TO 01-SEP-2015
     Route: 065
     Dates: start: 2015, end: 2015

REACTIONS (1)
  - Gastric ulcer haemorrhage [Unknown]
